FAERS Safety Report 26036862 (Version 1)
Quarter: 2025Q4

REPORT INFORMATION
  Report Type: Spontaneous
  Country: US (occurrence: US)
  Receive Date: 20251112
  Receipt Date: 20251112
  Transmission Date: 20260119
  Serious: No
  Sender: PARATEK PHARMACEUTICALS
  Company Number: US-PARATEK PHARMACEUTICALS, INC.-2025PTK00351

PATIENT
  Age: 16 Year
  Sex: Male

DRUGS (2)
  1. NUZYRA [Suspect]
     Active Substance: OMADACYCLINE
     Indication: Staphylococcal infection
     Dosage: 300 MG, 1X/DAY
  2. NUZYRA [Suspect]
     Active Substance: OMADACYCLINE
     Indication: Localised infection

REACTIONS (4)
  - Nausea [Unknown]
  - Vomiting [Unknown]
  - Intentional product use issue [Recovered/Resolved]
  - Off label use [Recovered/Resolved]
